FAERS Safety Report 13830920 (Version 5)
Quarter: 2018Q2

REPORT INFORMATION
  Report Type: Report from Study
  Country: US (occurrence: US)
  Receive Date: 20170803
  Receipt Date: 20180518
  Transmission Date: 20180711
  Serious: Yes (Hospitalization, Other)
  Sender: FDA-Public Use
  Company Number: US-ACTELION-A-US2017-157451

PATIENT
  Age: 65 Year
  Sex: Female

DRUGS (1)
  1. TRACLEER [Suspect]
     Active Substance: BOSENTAN
     Indication: PULMONARY ARTERIAL HYPERTENSION
     Dosage: 125 MG, BID
     Route: 048
     Dates: start: 20020109

REACTIONS (10)
  - Headache [Unknown]
  - Atrial fibrillation [Unknown]
  - Fall [Unknown]
  - Head injury [Unknown]
  - Accident [Unknown]
  - Cerebral haemorrhage [Unknown]
  - Suicidal ideation [Unknown]
  - Emotional distress [Unknown]
  - Contusion [Unknown]
  - Drug dose omission [Unknown]

NARRATIVE: CASE EVENT DATE: 20170727
